FAERS Safety Report 18349445 (Version 1)
Quarter: 2020Q4

REPORT INFORMATION
  Report Type: Spontaneous
  Country: CH (occurrence: CH)
  Receive Date: 20201006
  Receipt Date: 20201006
  Transmission Date: 20210114
  Serious: Yes (Hospitalization)
  Sender: FDA-Public Use
  Company Number: CH-TEVA-2020-CH-1836220

PATIENT
  Age: 56 Year
  Sex: Male
  Weight: 93 kg

DRUGS (6)
  1. TETABULIN [Suspect]
     Active Substance: HUMAN CLOSTRIDIUM TETANI TOXOID IMMUNE GLOBULIN
     Route: 030
     Dates: start: 202008, end: 202008
  2. TETANUS TOXOID ADSORBED (VACCINE) [Suspect]
     Active Substance: CLOSTRIDIUM TETANI TOXOID ANTIGEN (FORMALDEHYDE INACTIVATED)
     Route: 030
     Dates: start: 202008, end: 202008
  3. ROCEPHIN [Suspect]
     Active Substance: CEFTRIAXONE SODIUM
     Route: 041
     Dates: start: 20200824, end: 20200827
  4. CO-AMOXI MEPHA [Suspect]
     Active Substance: AMOXICILLIN\CLAVULANIC ACID
     Route: 041
     Dates: start: 20200824, end: 20200825
  5. ACICLOVIR LABATEC [Suspect]
     Active Substance: ACYCLOVIR SODIUM
     Route: 041
     Dates: start: 20200824, end: 20200826
  6. ACICLOVIR LABATEC [Suspect]
     Active Substance: ACYCLOVIR SODIUM
     Route: 041
     Dates: start: 20200827, end: 20200828

REACTIONS (3)
  - Encephalitis [Recovered/Resolved]
  - Nephrotic syndrome [Recovering/Resolving]
  - Acute kidney injury [Recovering/Resolving]

NARRATIVE: CASE EVENT DATE: 20200823
